FAERS Safety Report 11090736 (Version 1)
Quarter: 2015Q2

REPORT INFORMATION
  Report Type: Spontaneous
  Country: US (occurrence: US)
  Receive Date: 20150505
  Receipt Date: 20150505
  Transmission Date: 20150821
  Serious: No
  Sender: FDA-Public Use
  Company Number: US-ASTRAZENECA-2015SE39617

PATIENT
  Age: 14323 Day
  Sex: Female

DRUGS (14)
  1. TEGRETOL [Suspect]
     Active Substance: CARBAMAZEPINE
     Indication: PARTIAL SEIZURES
     Route: 065
     Dates: start: 201406
  2. GEODON [Suspect]
     Active Substance: ZIPRASIDONE HYDROCHLORIDE\ZIPRASIDONE MESYLATE
     Indication: DELUSIONAL DISORDER, UNSPECIFIED TYPE
     Route: 065
     Dates: start: 201412
  3. TRAZODONE HYDROCHLORIDE. [Suspect]
     Active Substance: TRAZODONE HYDROCHLORIDE
     Indication: INSOMNIA
     Route: 065
     Dates: start: 201406
  4. TOPAMAX [Concomitant]
     Active Substance: TOPIRAMATE
     Dates: start: 20150122, end: 20150212
  5. COLACE [Concomitant]
     Active Substance: DOCUSATE SODIUM
  6. PROLIXIN [Concomitant]
     Active Substance: FLUPHENAZINE HYDROCHLORIDE
     Dates: start: 20141121, end: 20141123
  7. LOXAPINE. [Concomitant]
     Active Substance: LOXAPINE
  8. COGENTIN [Suspect]
     Active Substance: BENZTROPINE MESYLATE
     Indication: ADVERSE REACTION
     Route: 065
  9. SAPHRIS [Concomitant]
     Active Substance: ASENAPINE MALEATE
  10. SEROQUEL [Suspect]
     Active Substance: QUETIAPINE FUMARATE
     Route: 048
  11. LITHIUM. [Concomitant]
     Active Substance: LITHIUM
  12. TRAZODONE HYDROCHLORIDE. [Suspect]
     Active Substance: TRAZODONE HYDROCHLORIDE
     Indication: PSYCHOTIC DISORDER
     Route: 065
     Dates: start: 201406
  13. MELATONIN [Concomitant]
     Active Substance: MELATONIN
  14. VITAMIN C [Concomitant]
     Active Substance: ASCORBIC ACID

REACTIONS (14)
  - Asthenopia [Not Recovered/Not Resolved]
  - Throat tightness [Unknown]
  - Partial seizures [Recovered/Resolved]
  - Metamorphopsia [Not Recovered/Not Resolved]
  - Blepharospasm [Recovered/Resolved]
  - Nervousness [Unknown]
  - Nystagmus [Recovered/Resolved]
  - Anxiety [Not Recovered/Not Resolved]
  - Eye disorder [Not Recovered/Not Resolved]
  - Muscle tightness [Not Recovered/Not Resolved]
  - Mental disorder [Recovered/Resolved]
  - Insomnia [Recovered/Resolved]
  - Adverse drug reaction [Recovered/Resolved]
  - Extrapyramidal disorder [Recovered/Resolved]

NARRATIVE: CASE EVENT DATE: 20141114
